FAERS Safety Report 5328448-1 (Version None)
Quarter: 2007Q2

REPORT INFORMATION
  Report Type: 
  Country: None (occurrence: None)
  Receive Date: 20070518
  Receipt Date: 20070516
  Transmission Date: 20071010
  Serious: Yes (Hospitalization)
  Sender: FDA-Public Use
  Company Number: US-BRISTOL-MYERS SQUIBB COMPANY-13757406

PATIENT
  Age: 65 Year
  Sex: Male

DRUGS (4)
  1. ERBITUX [Suspect]
     Indication: OESOPHAGEAL CARCINOMA
     Route: 042
     Dates: start: 20070323, end: 20070323
  2. BENADRYL [Concomitant]
     Dates: start: 20070105, end: 20070323
  3. RADIATION THERAPY [Concomitant]
  4. EPOGEN [Concomitant]

REACTIONS (1)
  - CEREBROVASCULAR ACCIDENT [None]
